FAERS Safety Report 9332775 (Version 3)
Quarter: 2013Q3

REPORT INFORMATION
  Report Type: Spontaneous
  Country: US (occurrence: US)
  Receive Date: 20130606
  Receipt Date: 20130719
  Transmission Date: 20140515
  Serious: No
  Sender: FDA-Public Use
  Company Number: US-PFIZER INC-2013167176

PATIENT
  Age: 28 Year
  Sex: Female

DRUGS (1)
  1. BICILLIN C-R/C-R 900/300 [Suspect]
     Indication: PHARYNGITIS STREPTOCOCCAL
     Dosage: UNK DF, SINGLE
     Route: 030
     Dates: start: 20130514, end: 20130514

REACTIONS (3)
  - Occupational exposure to product [Recovered/Resolved]
  - Laceration [Recovered/Resolved]
  - Product quality issue [Unknown]
